FAERS Safety Report 11730136 (Version 1)
Quarter: 2015Q4

REPORT INFORMATION
  Report Type: Spontaneous
  Country: US (occurrence: None)
  Receive Date: 20151112
  Receipt Date: 20151112
  Transmission Date: 20160304
  Serious: Yes (Death)
  Sender: FDA-Public Use
  Company Number: None

PATIENT
  Age: 55 Year
  Sex: Female

DRUGS (2)
  1. IBRANCE [Suspect]
     Active Substance: PALBOCICLIB
     Indication: NEOPLASM MALIGNANT
     Dosage: QD 21D ON 7D OFF
     Route: 048
     Dates: start: 20151022, end: 20151031
  2. LETROZOLE 2.5MG SUN [Suspect]
     Active Substance: LETROZOLE
     Indication: NEOPLASM MALIGNANT
     Route: 048
     Dates: start: 20151022, end: 20151031

REACTIONS (1)
  - Disease complication [None]

NARRATIVE: CASE EVENT DATE: 20151031
